FAERS Safety Report 5333002-1 (Version None)
Quarter: 2007Q2

REPORT INFORMATION
  Report Type: 
  Country: None (occurrence: None)
  Receive Date: 20070306
  Receipt Date: 20060714
  Transmission Date: 20071010
  Serious: Yes (Hospitalization)
  Sender: FDA-Public Use
  Company Number: A03200604535

PATIENT
  Age: 74 Year
  Sex: Male
  Weight: 83.9 kg

DRUGS (12)
  1. PLAVIX [Suspect]
     Dosage: 75 MG QD ORAL
     Route: 048
     Dates: start: 20050816
  2. GABAPENTIN [Concomitant]
  3. ROPINIROLE HCL [Concomitant]
  4. AMANTADINE HCL [Concomitant]
  5. FINASTERIDE [Concomitant]
  6. TAMSULOSIN HCL [Concomitant]
  7. TIMOLOL MALEATE [Concomitant]
  8. DIGOXIN [Concomitant]
  9. CARBIDOPA AND LEVODOPA [Concomitant]
  10. BENAZEPRIL HYDROCHLORIDE [Concomitant]
  11. OLANZAPINE [Concomitant]
  12. METHIMAZOLE [Concomitant]

REACTIONS (4)
  - CONSTIPATION [None]
  - CONTUSION [None]
  - DRY EYE [None]
  - OCULAR HYPERAEMIA [None]
